FAERS Safety Report 15091608 (Version 1)
Quarter: 2018Q2

REPORT INFORMATION
  Report Type: Report from Study
  Country: US (occurrence: US)
  Receive Date: 20180629
  Receipt Date: 20180629
  Transmission Date: 20180711
  Serious: No
  Sender: FDA-Public Use
  Company Number: US-AMGEN-USASP2011022457

PATIENT
  Age: 83 Year
  Sex: Female

DRUGS (9)
  1. PROLIA [Suspect]
     Active Substance: DENOSUMAB
     Indication: OSTEOPOROSIS POSTMENOPAUSAL
     Dosage: 60 MG, Q6H
     Dates: start: 20110117
  2. NAPROSYN [Concomitant]
     Active Substance: NAPROXEN
  3. GLUCOSAMINE CHONDROITIN [Concomitant]
     Active Substance: CHONDROITIN SULFATE (BOVINE)\GLUCOSAMINE HYDROCHLORIDE
  4. HYDROCHLOROTHIAZIDE. [Concomitant]
     Active Substance: HYDROCHLOROTHIAZIDE
  5. MICARDIS [Concomitant]
     Active Substance: TELMISARTAN
  6. BABY ASPIRIN [Concomitant]
     Active Substance: ASPIRIN
     Dosage: UNK
  7. TOPROL XL [Concomitant]
     Active Substance: METOPROLOL SUCCINATE
  8. CALCIUM +VIT D [Concomitant]
     Active Substance: CALCIUM\VITAMIN D
  9. MULTIVITAMINS [Concomitant]
     Active Substance: VITAMINS

REACTIONS (8)
  - Feeling hot [Recovered/Resolved]
  - Nausea [Recovered/Resolved]
  - Pain [Recovered/Resolved]
  - Pain in jaw [Recovered/Resolved]
  - Chills [Recovered/Resolved]
  - Urinary tract infection [Recovered/Resolved]
  - Rash papular [Recovered/Resolved]
  - Respiratory disorder [Recovered/Resolved]

NARRATIVE: CASE EVENT DATE: 20110118
